FAERS Safety Report 4839810-5 (Version None)
Quarter: 2005Q4

REPORT INFORMATION
  Report Type: 
  Country: None (occurrence: None)
  Receive Date: 20051129
  Receipt Date: 20050928
  Transmission Date: 20060501
  Serious: No
  Sender: FDA-Public Use
  Company Number: US-GLAXOSMITHKLINE-A0576229A

PATIENT
  Age: 47 Year
  Sex: Female
  Weight: 63.6 kg

DRUGS (2)
  1. WELLBUTRIN SR [Suspect]
     Indication: DEPRESSION
     Dosage: 150MG TWICE PER DAY
     Route: 048
     Dates: start: 20050925, end: 20050928
  2. ZOLOFT [Concomitant]

REACTIONS (1)
  - HEART RATE IRREGULAR [None]
